FAERS Safety Report 10069388 (Version 5)
Quarter: 2017Q3

REPORT INFORMATION
  Report Type: Report from Study
  Country: CA (occurrence: CA)
  Receive Date: 20140410
  Receipt Date: 20170711
  Transmission Date: 20171127
  Serious: Yes (Hospitalization, Other)
  Sender: FDA-Public Use
  Company Number: CA-ROCHE-1235148

PATIENT
  Age: 69 Year
  Sex: Female
  Weight: 62.6 kg

DRUGS (21)
  1. BROMAZEPAM [Concomitant]
     Active Substance: BROMAZEPAM
  2. NEXIUM [Concomitant]
     Active Substance: ESOMEPRAZOLE MAGNESIUM
  3. SYNTHROID [Concomitant]
     Active Substance: LEVOTHYROXINE SODIUM
  4. SPIRIVA [Concomitant]
     Active Substance: TIOTROPIUM BROMIDE MONOHYDRATE
  5. SALVENT (ALBUTEROL) [Concomitant]
  6. MORPHINE [Concomitant]
     Active Substance: MORPHINE
  7. PAROXETINE. [Concomitant]
     Active Substance: PAROXETINE
  8. DOCUSATE [Concomitant]
     Active Substance: DOCUSATE
  9. ACETAMINOPHEN. [Concomitant]
     Active Substance: ACETAMINOPHEN
     Indication: PREMEDICATION
     Route: 048
     Dates: start: 20121129
  10. NAPROXEN. [Concomitant]
     Active Substance: NAPROXEN
  11. METHYLPREDNISOLONE. [Concomitant]
     Active Substance: METHYLPREDNISOLONE
     Indication: PREMEDICATION
     Route: 042
     Dates: start: 20121129
  12. ALENDRONATE [Concomitant]
     Active Substance: ALENDRONATE SODIUM
  13. MIRTAZAPINE. [Concomitant]
     Active Substance: MIRTAZAPINE
  14. ASA [Concomitant]
     Active Substance: ASPIRIN
  15. FLOVENT [Concomitant]
     Active Substance: FLUTICASONE PROPIONATE
  16. SENNA - EXTRA [Concomitant]
  17. CELEBREX [Concomitant]
     Active Substance: CELECOXIB
  18. RITUXAN [Suspect]
     Active Substance: RITUXIMAB
     Indication: RHEUMATOID ARTHRITIS
     Dosage: LAST DOSE ON 25/JUL/2013
     Route: 042
     Dates: start: 20121129, end: 20170330
  19. ATORVASTATIN [Concomitant]
     Active Substance: ATORVASTATIN
  20. ADVAIR HFA [Concomitant]
     Active Substance: FLUTICASONE PROPIONATE\SALMETEROL XINAFOATE
  21. DIPHENHYDRAMINE HCL [Concomitant]
     Active Substance: DIPHENHYDRAMINE HYDROCHLORIDE
     Indication: PREMEDICATION
     Route: 048
     Dates: start: 20121129

REACTIONS (12)
  - Pain in extremity [Not Recovered/Not Resolved]
  - Laryngitis [Not Recovered/Not Resolved]
  - Pneumonia [Recovered/Resolved]
  - Musculoskeletal pain [Not Recovered/Not Resolved]
  - Joint swelling [Not Recovered/Not Resolved]
  - Arthralgia [Not Recovered/Not Resolved]
  - Back pain [Not Recovered/Not Resolved]
  - Drug ineffective [Unknown]
  - Bronchitis [Unknown]
  - Lung neoplasm malignant [Unknown]
  - Weight increased [Not Recovered/Not Resolved]
  - Arthralgia [Not Recovered/Not Resolved]

NARRATIVE: CASE EVENT DATE: 201305
